FAERS Safety Report 9379068 (Version 1)
Quarter: 2013Q3

REPORT INFORMATION
  Report Type: Spontaneous
  Country: DE (occurrence: DE)
  Receive Date: 20130702
  Receipt Date: 20130702
  Transmission Date: 20140515
  Serious: Yes (Other)
  Sender: FDA-Public Use
  Company Number: GXKR2013DE002239

PATIENT
  Sex: 0

DRUGS (4)
  1. CICLOSPORIN [Suspect]
     Dosage: MATERNAL DOSE: 75 [MG/D ]
     Route: 064
     Dates: start: 20110714, end: 20120307
  2. METHOTREXAT [Concomitant]
     Dosage: MATERNAL DOSE: 15 [MG/WEEK ] UNTIL GW 4
     Route: 064
  3. PREDNISOLON [Concomitant]
     Dosage: MATERNAL DOSE: 5 [MG/D ]
     Route: 064
     Dates: start: 20110714, end: 20120307
  4. CELESTAN [Concomitant]
     Route: 064
     Dates: start: 20120305, end: 20120306

REACTIONS (2)
  - Pancreatic insufficiency [Recovered/Resolved]
  - Motor developmental delay [Unknown]
